FAERS Safety Report 8776484 (Version 3)
Quarter: 2012Q4

REPORT INFORMATION
  Report Type: 
  Country: VE (occurrence: VE)
  Receive Date: 20120910
  Receipt Date: 20121030
  Transmission Date: 20130627
  Serious: Yes (Hospitalization, Other)
  Sender: FDA-Public Use
  Company Number: PHHY2011VE20734

PATIENT
  Age: 79 Year
  Sex: Female

DRUGS (4)
  1. ACLASTA [Suspect]
     Indication: OSTEOPOROSIS
     Dosage: 5 mg, annually
     Route: 042
     Dates: start: 201006
  2. ACLASTA [Suspect]
     Dosage: 5 mg, annually
     Route: 042
     Dates: start: 201106
  3. ACLASTA [Suspect]
     Dosage: 5 mg, annually
     Route: 042
     Dates: start: 201209
  4. CALCIUM [Concomitant]
     Dosage: 1000 mg, QD
     Route: 048

REACTIONS (6)
  - Intervertebral disc protrusion [Recovered/Resolved]
  - Spinal pain [Not Recovered/Not Resolved]
  - Musculoskeletal pain [Not Recovered/Not Resolved]
  - Pain in extremity [Not Recovered/Not Resolved]
  - Movement disorder [Unknown]
  - Post procedural complication [Unknown]
